FAERS Safety Report 25010467 (Version 1)
Quarter: 2025Q1

REPORT INFORMATION
  Report Type: Other
  Country: FR (occurrence: FR)
  Receive Date: 20250225
  Receipt Date: 20250225
  Transmission Date: 20250408
  Serious: Yes (Death, Other)
  Sender: DEXCEL
  Company Number: FR-DEXPHARM-2025-1012

PATIENT
  Age: 68 Year
  Sex: Male

DRUGS (6)
  1. ESOMEPRAZOLE [Interacting]
     Active Substance: ESOMEPRAZOLE
  2. TACROLIMUS [Interacting]
     Active Substance: TACROLIMUS
  3. ISAVUCONAZOLE [Interacting]
     Active Substance: ISAVUCONAZOLE
     Indication: Aspergillus infection
  4. ISAVUCONAZOLE [Interacting]
     Active Substance: ISAVUCONAZOLE
     Indication: Aspergillus infection
     Dosage: 100 MG/DAY
  5. VORICONAZOLE [Suspect]
     Active Substance: VORICONAZOLE
     Indication: Aspergillus infection
  6. POSACONAZOLE [Suspect]
     Active Substance: POSACONAZOLE
     Indication: Aspergillus infection

REACTIONS (6)
  - Inflammation [Unknown]
  - Hepatotoxicity [Unknown]
  - Nephropathy toxic [Unknown]
  - Multiple organ dysfunction syndrome [Fatal]
  - COVID-19 [Unknown]
  - Drug interaction [Unknown]
